FAERS Safety Report 8881935 (Version 1)
Quarter: 2012Q4

REPORT INFORMATION
  Report Type: 
  Country: JP (occurrence: JP)
  Receive Date: 20121105
  Receipt Date: 20121105
  Transmission Date: 20130627
  Serious: Yes (Hospitalization)
  Sender: FDA-Public Use
  Company Number: JP-009507513-1211JPN000742

PATIENT
  Age: 62 Year
  Sex: Female
  Weight: 49 kg

DRUGS (13)
  1. PEGINTRON [Suspect]
     Indication: HEPATITIS C
     Dosage: 30 Microgram, qw
     Route: 058
     Dates: start: 20120827
  2. PEGINTRON [Suspect]
     Dosage: 1.5 Microgram per kilogram, qw
     Route: 058
     Dates: start: 20120709
  3. REBETOL [Suspect]
     Indication: HEPATITIS C
     Dosage: 200 mg, qd
     Route: 048
     Dates: start: 20120921, end: 20120923
  4. REBETOL [Suspect]
     Dosage: 400 mg, qd
     Route: 048
     Dates: start: 20120709
  5. REBETOL [Suspect]
     Dosage: 200 mg, qd
     Route: 048
     Dates: start: 20120731, end: 20120826
  6. REBETOL [Suspect]
     Dosage: 200 mg, qod
     Route: 048
     Dates: start: 20120827, end: 20120920
  7. REBETOL [Suspect]
     Dosage: 200 mg, qod
     Route: 048
     Dates: start: 20120924
  8. TELAVIC [Suspect]
     Indication: HEPATITIS C
     Dosage: 1500 mg, qd
     Route: 048
     Dates: start: 20120709
  9. ZYLORIC [Concomitant]
     Dosage: 300 mg, qd
     Route: 048
  10. MAGLAX (MAGNESIUM OXIDE) [Concomitant]
     Route: 048
  11. PRIMPERAN [Concomitant]
     Route: 048
  12. PARIET [Concomitant]
     Route: 048
  13. PREDONINE [Concomitant]
     Dosage: 30 mg, qd
     Route: 048
     Dates: start: 20121001

REACTIONS (1)
  - Erythema [Unknown]
